FAERS Safety Report 9227893 (Version 1)
Quarter: 2013Q2

REPORT INFORMATION
  Report Type: Spontaneous
  Country: IT (occurrence: None)
  Receive Date: 20130410
  Receipt Date: 20130410
  Transmission Date: 20140414
  Serious: Yes (Hospitalization)
  Sender: FDA-Public Use
  Company Number: 2013AP004239

PATIENT
  Age: 57 Year
  Sex: Female

DRUGS (2)
  1. LOSARTAN (LOSARTAN) [Suspect]
     Indication: HYPERTENSION
     Route: 048
     Dates: start: 20120811, end: 20121212
  2. WARFARIN SODIUM (WARFARIN SODIUM) [Suspect]
     Indication: VERTEBRAL ARTERY DISSECTION
     Route: 048
     Dates: start: 20120811, end: 20121228

REACTIONS (2)
  - Hypotension [None]
  - International normalised ratio abnormal [None]
